FAERS Safety Report 25555410 (Version 1)
Quarter: 2025Q3

REPORT INFORMATION
  Report Type: Spontaneous
  Country: EU (occurrence: EU)
  Receive Date: 20250715
  Receipt Date: 20250715
  Transmission Date: 20251021
  Serious: Yes (Hospitalization, Other)
  Sender: GALDERMA
  Company Number: EU-ISDIN-2025002352

PATIENT

DRUGS (1)
  1. CLOBETASOL PROPIONATE [Suspect]
     Active Substance: CLOBETASOL PROPIONATE
     Indication: Erythema
     Route: 061

REACTIONS (9)
  - Cushing^s syndrome [Recovering/Resolving]
  - Obesity [Recovering/Resolving]
  - Cushingoid [Recovering/Resolving]
  - Blood corticotrophin decreased [Recovering/Resolving]
  - Weight increased [Recovering/Resolving]
  - Product use issue [Recovered/Resolved]
  - Product use in unapproved indication [Recovered/Resolved]
  - Incorrect product administration duration [Recovered/Resolved]
  - Intentional overdose [Recovered/Resolved]
